FAERS Safety Report 4382732-7 (Version None)
Quarter: 2004Q2

REPORT INFORMATION
  Report Type: 
  Country: None (occurrence: None)
  Receive Date: 20040617
  Receipt Date: 20040602
  Transmission Date: 20050107
  Serious: Yes (Hospitalization, Other)
  Sender: FDA-Public Use
  Company Number: 237113

PATIENT
  Sex: Female
  Weight: 4.6 kg

DRUGS (4)
  1. ACTRAPID PENFILL HM(GE) 3 ML (ACTRAPID PENFILL HM(GE) 3 ML) SOLUTION F [Suspect]
     Indication: DIABETES MELLITUS INSULIN-DEPENDENT
     Dosage: 33 IU, QD, TRANSPLACENTAL
     Route: 064
     Dates: start: 20030430
  2. PROTAPHAN HUMAN (INSULIN HUMAN INJECTION, ISOPHANE) [Concomitant]
  3. PENBRITIN (AMPICILLIN) [Concomitant]
  4. GARAMYCIN [Concomitant]

REACTIONS (3)
  - CAESAREAN SECTION [None]
  - DRUG EXPOSURE DURING PREGNANCY [None]
  - HYPOGLYCAEMIA NEONATAL [None]
